FAERS Safety Report 11473793 (Version 1)
Quarter: 2015Q3

REPORT INFORMATION
  Report Type: Spontaneous
  Country: US (occurrence: None)
  Receive Date: 20150908
  Receipt Date: 20150908
  Transmission Date: 20151125
  Serious: Yes (Disabling)
  Sender: FDA-Public Use
  Company Number: None

PATIENT
  Age: 76 Year
  Sex: Male

DRUGS (4)
  1. AVODART [Concomitant]
     Active Substance: DUTASTERIDE
  2. XALATHAN [Concomitant]
  3. LEXAPRO [Concomitant]
     Active Substance: ESCITALOPRAM OXALATE
  4. LEVOFLOXACIN 500 MG TAB QTY 10 1 DAILY MACLEODS PHARMA-DRUG CAME IN PUBLIX PHARMACY BOTTLE, MACLEODS PHARMA-NOT BRAND. [Suspect]
     Active Substance: LEVOFLOXACIN
     Indication: TESTICULAR SWELLING
     Route: 048
     Dates: start: 20150420, end: 20150430

REACTIONS (4)
  - Gait disturbance [None]
  - Influenza like illness [None]
  - Pain in extremity [None]
  - Pain [None]

NARRATIVE: CASE EVENT DATE: 20150428
